FAERS Safety Report 24046590 (Version 1)
Quarter: 2024Q3

REPORT INFORMATION
  Report Type: Spontaneous
  Country: US (occurrence: US)
  Receive Date: 20240703
  Receipt Date: 20240703
  Transmission Date: 20241017
  Serious: No
  Sender: SANOFI AVENTIS
  Company Number: US-SA-SAC20240627000458

PATIENT
  Sex: Female

DRUGS (1)
  1. DUPIXENT [Suspect]
     Active Substance: DUPILUMAB
     Indication: Dermatitis atopic
     Dosage: DOSE-DUPIXENT SYR (2-PK) 300MG/2ML FREQUENCY -EVERY 14 DAYS
     Route: 058
     Dates: start: 201812

REACTIONS (1)
  - Maternal exposure during pregnancy [Unknown]
